FAERS Safety Report 8344880-6 (Version None)
Quarter: 2012Q1

REPORT INFORMATION
  Report Type: 
  Country: None (occurrence: None)
  Receive Date: 20120315
  Receipt Date: 20110527
  Transmission Date: 20120608
  Serious: No
  Sender: FDA-Public Use
  Company Number: PHHY2011US40727

PATIENT
  Age: 38 Year
  Sex: Female
  Weight: 59 kg

DRUGS (1)
  1. GILENYA [Suspect]
     Indication: RELAPSING-REMITTING MULTIPLE SCLEROSIS
     Dosage: 0.5 MG, QD, ORAL
     Route: 048
     Dates: start: 20110223

REACTIONS (6)
  - WHITE BLOOD CELL COUNT DECREASED [None]
  - EYE PAIN [None]
  - COUGH [None]
  - RHINORRHOEA [None]
  - THROAT IRRITATION [None]
  - VISION BLURRED [None]
